FAERS Safety Report 6971828-9 (Version None)
Quarter: 2010Q3

REPORT INFORMATION
  Report Type: 
  Country: None (occurrence: None)
  Receive Date: 20100908
  Receipt Date: 20100830
  Transmission Date: 20110219
  Serious: Yes (Death, Hospitalization)
  Sender: FDA-Public Use
  Company Number: US-AMGEN-QUU434850

PATIENT
  Sex: Female

DRUGS (8)
  1. ENBREL [Suspect]
     Indication: RHEUMATOID ARTHRITIS
     Dates: end: 20100807
  2. METHOTREXATE [Concomitant]
  3. PREDNISONE [Concomitant]
  4. BONIVA [Concomitant]
  5. OXYCONTIN [Concomitant]
  6. HYDROCODONE [Concomitant]
  7. ATENOLOL [Concomitant]
  8. HYDROCHLOROTHIAZIDE [Concomitant]

REACTIONS (4)
  - ACUTE RESPIRATORY FAILURE [None]
  - DEATH [None]
  - PANCYTOPENIA [None]
  - SEPTIC SHOCK [None]
